FAERS Safety Report 9570933 (Version 1)
Quarter: 2013Q3

REPORT INFORMATION
  Report Type: Spontaneous
  Country: US (occurrence: None)
  Receive Date: 20130927
  Receipt Date: 20130927
  Transmission Date: 20140515
  Serious: Yes (Life-Threatening, Other)
  Sender: FDA-Public Use
  Company Number: None

PATIENT
  Age: 80 None
  Sex: Female

DRUGS (1)
  1. ENBREL [Suspect]
     Route: 058
     Dates: start: 20130222, end: 20120819

REACTIONS (3)
  - Rash [None]
  - Myalgia [None]
  - Mood swings [None]
